FAERS Safety Report 7522111-4 (Version None)
Quarter: 2011Q2

REPORT INFORMATION
  Report Type: 
  Country: None (occurrence: None)
  Receive Date: 20110603
  Receipt Date: 20101223
  Transmission Date: 20111010
  Serious: Yes (Other)
  Sender: FDA-Public Use
  Company Number: US-BAYER-200943311NA

PATIENT
  Age: 20 Year
  Sex: Female
  Weight: 79 kg

DRUGS (8)
  1. ZANTAC [Concomitant]
  2. LEVONORGESTREL [Concomitant]
     Dosage: UNK
     Dates: start: 20080128, end: 20080811
  3. TRAMADOL HYDROCHLORIDE [Concomitant]
  4. YASMIN [Suspect]
     Dosage: UNK
     Dates: start: 20071217, end: 20080201
  5. YAZ [Suspect]
     Dosage: 1 DF, QD
     Dates: start: 20071001, end: 20090101
  6. HYDROXYZINE PAMOATE [Concomitant]
  7. HYOSCYAMINE [Concomitant]
  8. ELMIRON [Concomitant]

REACTIONS (6)
  - CHOLECYSTITIS CHRONIC [None]
  - GALLBLADDER DISORDER [None]
  - VOMITING [None]
  - NAUSEA [None]
  - GASTROOESOPHAGEAL REFLUX DISEASE [None]
  - ABDOMINAL PAIN UPPER [None]
